FAERS Safety Report 7660527-6 (Version None)
Quarter: 2011Q3

REPORT INFORMATION
  Report Type: 
  Country: None (occurrence: None)
  Receive Date: 20110805
  Receipt Date: 20110727
  Transmission Date: 20111222
  Serious: Yes (Hospitalization, Other)
  Sender: FDA-Public Use
  Company Number: US-MERCK-1008USA04024

PATIENT
  Age: 74 Year
  Sex: Female

DRUGS (4)
  1. FOSAMAX [Suspect]
     Route: 048
     Dates: start: 20090808, end: 20090809
  2. FOSAMAX [Suspect]
     Indication: OSTEOPENIA
     Route: 048
     Dates: start: 20030101, end: 20110101
  3. ALENDRONATE SODIUM [Suspect]
     Route: 065
     Dates: start: 20080820, end: 20101221
  4. FOSAMAX [Suspect]
     Route: 048
     Dates: start: 20090808, end: 20090815

REACTIONS (47)
  - COLON INJURY [None]
  - CONTUSION [None]
  - PERINEAL PAIN [None]
  - FOOT FRACTURE [None]
  - BREAST NECROSIS [None]
  - TONSILLAR DISORDER [None]
  - DRUG HYPERSENSITIVITY [None]
  - BURSITIS [None]
  - CARDIAC DISORDER [None]
  - STRESS FRACTURE [None]
  - HYPERLIPIDAEMIA [None]
  - FEMUR FRACTURE [None]
  - ANXIETY [None]
  - ASTHMA [None]
  - VITAMIN D DEFICIENCY [None]
  - DYSPHAGIA [None]
  - DYSURIA [None]
  - NAUSEA [None]
  - HYPERTENSION [None]
  - HYPERSENSITIVITY [None]
  - GASTROOESOPHAGEAL REFLUX DISEASE [None]
  - HAEMORRHAGIC ANAEMIA [None]
  - FIBROCYSTIC BREAST DISEASE [None]
  - CONSTIPATION [None]
  - DIARRHOEA [None]
  - MUSCLE SPASMS [None]
  - COUGH [None]
  - SEROMA [None]
  - URINARY TRACT INFECTION [None]
  - FRACTURE DELAYED UNION [None]
  - FALL [None]
  - ARTHROPATHY [None]
  - MENISCUS LESION [None]
  - DIVERTICULUM [None]
  - DRUG INEFFECTIVE [None]
  - THROAT IRRITATION [None]
  - FUNGAL INFECTION [None]
  - VIRAL INFECTION [None]
  - HAEMORRHOIDS [None]
  - INFECTION [None]
  - DYSPHONIA [None]
  - BREAST CANCER IN SITU [None]
  - RECTAL HAEMORRHAGE [None]
  - PAIN [None]
  - URINARY INCONTINENCE [None]
  - LOCALISED INFECTION [None]
  - FATIGUE [None]
